FAERS Safety Report 7710979-8 (Version None)
Quarter: 2011Q3

REPORT INFORMATION
  Report Type: 
  Country: None (occurrence: None)
  Receive Date: 20110825
  Receipt Date: 20110817
  Transmission Date: 20111222
  Serious: Yes (Hospitalization, Other)
  Sender: FDA-Public Use
  Company Number: US-ASTRAZENECA-2011SE49267

PATIENT
  Age: 28 Year
  Sex: Female
  Weight: 54.4 kg

DRUGS (5)
  1. NEXIUM [Suspect]
     Indication: GASTROOESOPHAGEAL REFLUX DISEASE
     Route: 048
     Dates: start: 20090101, end: 20110629
  2. LITHIUM CARBONATE [Concomitant]
     Dates: end: 20110601
  3. SERTRALINE HYDROCHLORIDE [Concomitant]
     Dates: end: 20110601
  4. TRAZODONE HCL [Concomitant]
     Dates: end: 20110601
  5. PAXIL CR [Concomitant]
     Dates: end: 20110601

REACTIONS (7)
  - WRIST FRACTURE [None]
  - FACIAL BONES FRACTURE [None]
  - FEMUR FRACTURE [None]
  - LOWER LIMB FRACTURE [None]
  - INTERNAL FIXATION OF FRACTURE [None]
  - ROAD TRAFFIC ACCIDENT [None]
  - INCORRECT DRUG ADMINISTRATION DURATION [None]
